FAERS Safety Report 4865390-4 (Version None)
Quarter: 2005Q4

REPORT INFORMATION
  Report Type: 
  Country: None (occurrence: None)
  Receive Date: 20051220
  Receipt Date: 20051129
  Transmission Date: 20060501
  Serious: Yes (Hospitalization, Other)
  Sender: FDA-Public Use
  Company Number: USA0510111482

PATIENT
  Age: 53 Year
  Sex: Male

DRUGS (5)
  1. HUMULIN R [Suspect]
     Indication: DIABETES MELLITUS INSULIN-DEPENDENT
     Dosage: 25 UG, DAILY (1/D)
  2. HUMULIN (HUMAN INSULIN (RDNA ORIGIN) NPH) VIAL [Suspect]
     Indication: DIABETES MELLITUS INSULIN-DEPENDENT
     Dosage: 15 U, 2/D
  3. DEPAKOTE [Concomitant]
  4. CLONOPIN (CLONAZEPAM) [Concomitant]
  5. LEVOTHYROXINE SODIUM [Concomitant]

REACTIONS (12)
  - ABNORMAL BEHAVIOUR [None]
  - BLINDNESS UNILATERAL [None]
  - BRAIN DAMAGE [None]
  - BURNING SENSATION [None]
  - CATARACT [None]
  - COMA [None]
  - CONVULSION [None]
  - FEELING HOT [None]
  - HYPOGLYCAEMIA [None]
  - THYROID DISORDER [None]
  - VISUAL ACUITY REDUCED [None]
  - WALKING AID USER [None]
